FAERS Safety Report 5723207-X (Version None)
Quarter: 2008Q2

REPORT INFORMATION
  Report Type: 
  Country: None (occurrence: None)
  Receive Date: 20080428
  Receipt Date: 20080418
  Transmission Date: 20081010
  Serious: Yes (Hospitalization, Other)
  Sender: FDA-Public Use
  Company Number: FABR-1000210

PATIENT
  Age: 49 Year
  Sex: Male
  Weight: 99.5 kg

DRUGS (9)
  1. FABRAZYME [Suspect]
     Indication: FABRY'S DISEASE
     Dosage: 1 MG/KG, Q2W, INTRAVENOUS
     Route: 042
     Dates: start: 20030801
  2. PROGRAF [Concomitant]
  3. CELLCEPT [Concomitant]
  4. PAXIL [Concomitant]
  5. LIPITOR [Concomitant]
  6. NORVASC [Concomitant]
  7. MAGNESIUM OXIDE (MAGNESIUM OXIDE) [Concomitant]
  8. FOLIC ACID [Concomitant]
  9. PREDNISONE TAB [Concomitant]

REACTIONS (12)
  - ARTHRALGIA [None]
  - CONTUSION [None]
  - DYSKINESIA [None]
  - FALL [None]
  - HEADACHE [None]
  - LIBIDO DECREASED [None]
  - MUSCLE SPASMS [None]
  - NIGHTMARE [None]
  - PAIN [None]
  - PARAESTHESIA [None]
  - PITUITARY TUMOUR [None]
  - PYREXIA [None]
